FAERS Safety Report 23659450 (Version 1)
Quarter: 2024Q1

REPORT INFORMATION
  Report Type: Spontaneous
  Country: JP (occurrence: JP)
  Receive Date: 20240321
  Receipt Date: 20240321
  Transmission Date: 20240409
  Serious: Yes (Life-Threatening, Hospitalization, Other)
  Sender: FDA-Public Use
  Company Number: JP-MLMSERVICE-20240205-4808753-1

PATIENT
  Age: 19 Year
  Sex: Female
  Weight: 55 kg

DRUGS (9)
  1. ESCITALOPRAM [Interacting]
     Active Substance: ESCITALOPRAM OXALATE
     Indication: Eating disorder
     Route: 065
  2. CHLORPHENIRAMINE MALEATE [Interacting]
     Active Substance: CHLORPHENIRAMINE MALEATE
     Indication: Suicide attempt
     Dosage: TIME INTERVAL: TOTAL
     Route: 048
  3. METHYLEPHEDRINE [Interacting]
     Active Substance: METHYLEPHEDRINE
     Indication: Suicide attempt
     Dosage: TIME INTERVAL: TOTAL
     Route: 048
  4. DIHYDROCODEINE PHOSPHATE [Interacting]
     Active Substance: DIHYDROCODEINE PHOSPHATE
     Indication: Suicide attempt
     Dosage: TIME INTERVAL: TOTAL
     Route: 048
  5. CAFFEINE [Interacting]
     Active Substance: CAFFEINE
     Indication: Suicide attempt
     Dosage: TIME INTERVAL: TOTAL
     Route: 048
  6. IBUPROFEN [Interacting]
     Active Substance: IBUPROFEN
     Indication: Suicide attempt
     Dosage: TIME INTERVAL: TOTAL
     Route: 048
  7. LITHIUM [Concomitant]
     Active Substance: LITHIUM
     Indication: Depression
     Route: 065
  8. DEXTROMETHORPHAN HYDROBROMIDE [Interacting]
     Active Substance: DEXTROMETHORPHAN HYDROBROMIDE
     Indication: Suicide attempt
     Dosage: TIME INTERVAL: TOTAL
     Route: 048
  9. ACETAMINOPHEN [Interacting]
     Active Substance: ACETAMINOPHEN
     Indication: Suicide attempt
     Dosage: TIME INTERVAL: TOTAL
     Route: 048

REACTIONS (5)
  - Coma [Recovered/Resolved]
  - Electroencephalogram abnormal [Recovered/Resolved]
  - Drug interaction [Recovered/Resolved]
  - Serotonin syndrome [Recovered/Resolved]
  - Toxic encephalopathy [Recovered/Resolved]
